FAERS Safety Report 18445050 (Version 7)
Quarter: 2021Q3

REPORT INFORMATION
  Report Type: Spontaneous
  Country: US (occurrence: US)
  Receive Date: 20201030
  Receipt Date: 20210723
  Transmission Date: 20211014
  Serious: Yes (Hospitalization)
  Sender: FDA-Public Use
  Company Number: US-ACORDA-ACO_166585_2020

PATIENT
  Age: 39 Year
  Sex: Female

DRUGS (10)
  1. AMPYRA [Suspect]
     Active Substance: DALFAMPRIDINE
     Indication: MULTIPLE SCLEROSIS
     Dosage: 10 MILLIGRAM, BID
     Route: 065
     Dates: start: 20201012
  2. MULTIVITAMINS [Concomitant]
     Active Substance: VITAMINS
     Indication: PRODUCT USED FOR UNKNOWN INDICATION
     Dosage: UNK
     Route: 065
  3. AMPYRA [Suspect]
     Active Substance: DALFAMPRIDINE
     Dosage: 10 MILLIGRAM, BID
     Route: 065
     Dates: start: 20201111
  4. TECFIDERA [Suspect]
     Active Substance: DIMETHYL FUMARATE
     Indication: MULTIPLE SCLEROSIS
     Dosage: 240 MILLIGRAM, BID
     Route: 048
     Dates: start: 202009
  5. TECFIDERA [Suspect]
     Active Substance: DIMETHYL FUMARATE
     Dosage: UNK
     Route: 065
     Dates: start: 202010, end: 202010
  6. VITAMIN D [Concomitant]
     Active Substance: VITAMIN D NOS
     Indication: PRODUCT USED FOR UNKNOWN INDICATION
     Dosage: UNK
     Route: 065
  7. AMPYRA [Suspect]
     Active Substance: DALFAMPRIDINE
     Indication: GAIT DISTURBANCE
     Dosage: 10 MILLIGRAM, BID
     Route: 065
  8. VITAMIN C [Concomitant]
     Active Substance: ASCORBIC ACID
     Indication: PRODUCT USED FOR UNKNOWN INDICATION
     Dosage: UNK
     Route: 065
  9. TECFIDERA [Suspect]
     Active Substance: DIMETHYL FUMARATE
     Dosage: UNK
     Route: 065
     Dates: start: 20201001
  10. TECFIDERA [Suspect]
     Active Substance: DIMETHYL FUMARATE
     Dosage: UNK
     Route: 065
     Dates: end: 20201011

REACTIONS (28)
  - Gait inability [Unknown]
  - Flushing [Unknown]
  - Skin abrasion [Not Recovered/Not Resolved]
  - Stress [Unknown]
  - Malaise [Unknown]
  - Hot flush [Not Recovered/Not Resolved]
  - Movement disorder [Unknown]
  - Multiple sclerosis relapse [Recovered/Resolved]
  - Tremor [Unknown]
  - Limb discomfort [Unknown]
  - Heart rate increased [Unknown]
  - Mobility decreased [Unknown]
  - Nausea [Recovered/Resolved]
  - Contusion [Not Recovered/Not Resolved]
  - Anxiety [Unknown]
  - Urticaria [Unknown]
  - Vomiting [Recovered/Resolved]
  - Vertigo [Unknown]
  - Pruritus [Unknown]
  - Hypoaesthesia [Unknown]
  - Dehydration [Recovered/Resolved]
  - Dysstasia [Unknown]
  - Magnetic resonance imaging abnormal [Not Recovered/Not Resolved]
  - Fear [Unknown]
  - Vascular calcification [Unknown]
  - Fall [Recovered/Resolved]
  - Multiple sclerosis [Unknown]
  - Burning sensation [Unknown]

NARRATIVE: CASE EVENT DATE: 20201009
